FAERS Safety Report 20428351 (Version 3)
Quarter: 2022Q1

REPORT INFORMATION
  Report Type: Spontaneous
  Country: US (occurrence: US)
  Receive Date: 20220204
  Receipt Date: 20220304
  Transmission Date: 20220424
  Serious: No
  Sender: FDA-Public Use
  Company Number: US-ORGANON-O2202USA000139

PATIENT
  Age: 33 Year
  Sex: Female

DRUGS (1)
  1. NEXPLANON [Suspect]
     Active Substance: ETONOGESTREL
     Indication: Contraception
     Dosage: 1 DOSAGE FORM, ONE EVERY THREE YEARS
     Route: 059
     Dates: start: 20220201

REACTIONS (2)
  - Inappropriate schedule of product administration [Unknown]
  - Wrong technique in device usage process [Unknown]

NARRATIVE: CASE EVENT DATE: 20220201
